FAERS Safety Report 6158574-9 (Version None)
Quarter: 2009Q2

REPORT INFORMATION
  Report Type: 
  Country: None (occurrence: None)
  Receive Date: 20090417
  Receipt Date: 20090406
  Transmission Date: 20091009
  Serious: Yes (Other)
  Sender: FDA-Public Use
  Company Number: FR-ELI_LILLY_AND_COMPANY-FR200902003876

PATIENT
  Age: 69 Year
  Sex: Male

DRUGS (2)
  1. GEMZAR [Suspect]
     Indication: LUNG CANCER METASTATIC
     Dosage: 1000 MG/M2, UNKNOWN
     Route: 042
     Dates: start: 20080520, end: 20090127
  2. TAXOTERE [Concomitant]
     Indication: LUNG CANCER METASTATIC
     Dosage: 80 MG, DAILY (1/D)
     Route: 042
     Dates: start: 20080520, end: 20090114

REACTIONS (3)
  - DYSPNOEA EXERTIONAL [None]
  - PLEURAL EFFUSION [None]
  - PLEURISY [None]
